FAERS Safety Report 6589023-4 (Version None)
Quarter: 2010Q1

REPORT INFORMATION
  Report Type: 
  Country: None (occurrence: None)
  Receive Date: 20100218
  Receipt Date: 20100208
  Transmission Date: 20100710
  Serious: Yes (Death)
  Sender: FDA-Public Use
  Company Number: US-GENENTECH-298045

PATIENT
  Age: 59 Year
  Sex: Male

DRUGS (5)
  1. RITUXAN [Suspect]
     Indication: ENDOCRINE OPHTHALMOPATHY
     Dosage: 1 G, Q2W
     Route: 065
  2. CELLCEPT [Concomitant]
     Indication: IMMUNOSUPPRESSION
     Dosage: UNK
  3. METHYLPREDNISOLONE [Concomitant]
     Indication: PREMEDICATION
     Dosage: 100 MG, UNK
     Route: 042
  4. ACETAMINOPHEN [Concomitant]
     Indication: PREMEDICATION
     Dosage: 1 G, UNK
     Route: 048
  5. DIPHENHYDRAMINE [Concomitant]
     Indication: PREMEDICATION
     Dosage: 50 MG, UNK

REACTIONS (1)
  - CARDIAC ARREST [None]
